FAERS Safety Report 8027662-4 (Version None)
Quarter: 2012Q1

REPORT INFORMATION
  Report Type: 
  Country: None (occurrence: None)
  Receive Date: 20120106
  Receipt Date: 20111227
  Transmission Date: 20120608
  Serious: Yes (Death)
  Sender: FDA-Public Use
  Company Number: US-JNJFOC-20111212666

PATIENT
  Age: 25 Year
  Sex: Male

DRUGS (6)
  1. ZOLPIDEM [Suspect]
     Indication: ILL-DEFINED DISORDER
  2. KETOROLAC TROMETHAMINE [Suspect]
     Indication: ILL-DEFINED DISORDER
  3. ACETAMINOPHEN [Suspect]
     Route: 048
  4. OXYCODONE HCL [Suspect]
     Indication: ILL-DEFINED DISORDER
  5. OXYMORPHONE [Suspect]
     Indication: ILL-DEFINED DISORDER
  6. ACETAMINOPHEN [Suspect]
     Indication: ILL-DEFINED DISORDER
     Route: 048

REACTIONS (3)
  - TOXICITY TO VARIOUS AGENTS [None]
  - COMPLETED SUICIDE [None]
  - CARDIO-RESPIRATORY ARREST [None]
